FAERS Safety Report 25227056 (Version 3)
Quarter: 2025Q2

REPORT INFORMATION
  Report Type: Spontaneous
  Country: GB (occurrence: GB)
  Receive Date: 20250422
  Receipt Date: 20250527
  Transmission Date: 20250716
  Serious: Yes (Other)
  Sender: GALPHARM INTERNATIONAL
  Company Number: None

PATIENT
  Age: 75 Year
  Sex: Male
  Weight: 89 kg

DRUGS (27)
  1. ACETAMINOPHEN [Suspect]
     Active Substance: ACETAMINOPHEN
     Indication: Ill-defined disorder
     Route: 065
     Dates: start: 20250404
  2. DARBEPOETIN ALFA [Concomitant]
     Active Substance: DARBEPOETIN ALFA
     Indication: Ill-defined disorder
     Route: 058
     Dates: start: 20250212
  3. AMOXICILLIN [Concomitant]
     Active Substance: AMOXICILLIN
     Indication: Ill-defined disorder
     Dosage: ONE DAILY FOR A WEEK (RENAL DOSE, TAKE AFTER DI...
     Dates: start: 20250402
  4. POTASSIUM [Concomitant]
     Active Substance: POTASSIUM
     Indication: Ill-defined disorder
     Dosage: ONE TABLET TO BE TAKEN DAILY FOR THREE DAYS. SH...
     Route: 065
     Dates: start: 20250406
  5. ALENDRONIC ACID [Concomitant]
     Active Substance: ALENDRONIC ACID
     Indication: Ill-defined disorder
     Dosage: ONE TABLET TO BE TAKEN ONCE WEEKLY ON THE SAME ...
     Dates: start: 20231219, end: 20250327
  6. AMLODIPINE [Concomitant]
     Active Substance: AMLODIPINE BESYLATE
     Indication: Ill-defined disorder
     Dosage: TAKE ONE TABLET ONCE DAILY FOR BLOOD PRESSURE
     Dates: start: 20231219, end: 20250326
  7. CALCIUM CARBONATE [Concomitant]
     Active Substance: CALCIUM CARBONATE
     Indication: Ill-defined disorder
     Dosage: CHEW ONE TABLET ONCE DAILY
     Route: 048
     Dates: start: 20231219, end: 20250327
  8. MINERAL OIL\PARAFFIN [Concomitant]
     Active Substance: MINERAL OIL\PARAFFIN
     Indication: Ill-defined disorder
     Route: 061
     Dates: start: 20231219
  9. FOLIC ACID [Concomitant]
     Active Substance: FOLIC ACID
     Indication: Ill-defined disorder
     Dosage: 1 DOSAGE FORM, QD, ONE TABLET TO BE TAKEN EACH DAY APART FROM FRID...
     Dates: start: 20231219, end: 20250327
  10. FUROSEMIDE [Concomitant]
     Active Substance: FUROSEMIDE
     Indication: Ill-defined disorder
     Dosage: ONE TABLET TO BE TAKEN ONCE A DAY IN THE MORNIN...
     Dates: start: 20231219, end: 20250326
  11. GABAPENTIN [Concomitant]
     Active Substance: GABAPENTIN
     Indication: Ill-defined disorder
     Dosage: TAKE ONE CAPSULE ONCE DAILY IN THE EVENING
     Dates: start: 20231219, end: 20250327
  12. LANSOPRAZOLE [Concomitant]
     Active Substance: LANSOPRAZOLE
     Indication: Ill-defined disorder
     Dosage: TAKE ONE CAPSULE ONCE DAILY FOR THE STOMACH
     Dates: start: 20231219
  13. LEVETIRACETAM [Concomitant]
     Active Substance: LEVETIRACETAM
     Indication: Ill-defined disorder
     Dosage: ONE TABLET TO BE TAKEN TWICE A DAY
     Dates: start: 20231219
  14. METHOTREXATE [Concomitant]
     Active Substance: METHOTREXATE
     Indication: Ill-defined disorder
     Route: 065
     Dates: start: 20231219, end: 20250327
  15. MIRABEGRON [Concomitant]
     Active Substance: MIRABEGRON
     Indication: Ill-defined disorder
     Dosage: TAKE ONE TABLET ONCE DAILY
     Dates: start: 20231219, end: 20250327
  16. ALBUTEROL [Concomitant]
     Active Substance: ALBUTEROL
     Indication: Ill-defined disorder
     Route: 055
     Dates: start: 20231219
  17. SERTRALINE [Concomitant]
     Active Substance: SERTRALINE HYDROCHLORIDE
     Indication: Ill-defined disorder
     Dosage: 1 DOSAGE FORM, QD (ONE TABLET TO BE TAKEN ONCE DAILY. TOTAL DAILY ...)
     Dates: start: 20231219
  18. TAMSULOSIN HYDROCHLORIDE [Concomitant]
     Active Substance: TAMSULOSIN HYDROCHLORIDE
     Indication: Ill-defined disorder
     Dosage: ONE TO BE TAKEN EACH DAY
     Dates: start: 20231219, end: 20250327
  19. ZOPICLONE [Concomitant]
     Active Substance: ZOPICLONE
     Indication: Ill-defined disorder
     Dosage: ONE TABLET TO BE TAKEN ONCE DAILY AT NIGHT
     Dates: start: 20231219
  20. LOPERAMIDE [Concomitant]
     Active Substance: LOPERAMIDE
     Indication: Ill-defined disorder
     Dosage: TWO CAPSULES (4MG) TO BE TAKEN THREE TIMES A DA...
     Dates: start: 20231228, end: 20250327
  21. BUPRENORPHINE [Concomitant]
     Active Substance: BUPRENORPHINE
     Indication: Ill-defined disorder
     Dosage: ONE PATCH TO BE APPLIED ONCE WEEKLY ON THE SAME...
     Route: 062
     Dates: start: 20240223
  22. BUDESONIDE\FORMOTEROL\GLYCOPYRRONIUM [Concomitant]
     Active Substance: BUDESONIDE\FORMOTEROL\GLYCOPYRRONIUM
     Indication: Ill-defined disorder
     Dosage: INHALE TWO DOSES TWICE DAILY VIA SPACER
     Route: 055
     Dates: start: 20240304
  23. 3M CAVILON ANTIFUNGAL [Concomitant]
     Active Substance: MICONAZOLE NITRATE
     Indication: Ill-defined disorder
     Route: 061
     Dates: start: 20240529
  24. PYRIDOSTIGMINE BROMIDE [Concomitant]
     Active Substance: PYRIDOSTIGMINE BROMIDE
     Indication: Ill-defined disorder
     Dates: start: 20240913, end: 20250327
  25. CARBOCYSTEINE [Concomitant]
     Active Substance: CARBOCYSTEINE
     Indication: Ill-defined disorder
     Route: 065
     Dates: start: 20250326
  26. CYCLIZINE [Concomitant]
     Active Substance: CYCLIZINE
     Indication: Ill-defined disorder
     Dosage: ONE TABLET TO BE TAKEN THREE TIMES A DAY
     Dates: start: 20250326
  27. PREGABALIN [Concomitant]
     Active Substance: PREGABALIN
     Indication: Ill-defined disorder
     Dosage: ONE CAPSULE TO BE TAKEN TWICE A DAY
     Dates: start: 20250326

REACTIONS (2)
  - Malaise [Unknown]
  - Drug hypersensitivity [Unknown]
